FAERS Safety Report 4721817-X (Version None)
Quarter: 2005Q3

REPORT INFORMATION
  Report Type: 
  Country: None (occurrence: None)
  Receive Date: 20050721
  Receipt Date: 20050427
  Transmission Date: 20060218
  Serious: No
  Sender: FDA-Public Use
  Company Number: US-BRISTOL-MYERS SQUIBB COMPANY-12948105

PATIENT
  Age: 90 Year
  Sex: Female
  Weight: 58 kg

DRUGS (5)
  1. COUMADIN [Suspect]
     Indication: TRANSIENT ISCHAEMIC ATTACK
     Dosage: DOSE REDUCED TO 1 MG DAILY ON 27-APR-2005 BECAUSE OF INR
     Route: 048
     Dates: start: 20050401
  2. ASPIRIN [Concomitant]
  3. PREVACID [Concomitant]
  4. SYNTHROID [Concomitant]
  5. ZESTRIL [Concomitant]

REACTIONS (1)
  - ABDOMINAL PAIN UPPER [None]
